FAERS Safety Report 5472847-4 (Version None)
Quarter: 2007Q4

REPORT INFORMATION
  Report Type: 
  Country: None (occurrence: None)
  Receive Date: 20071001
  Receipt Date: 20070927
  Transmission Date: 20080405
  Serious: Yes (Hospitalization)
  Sender: FDA-Public Use
  Company Number: A0671245A

PATIENT
  Age: 78 Year
  Sex: Female
  Weight: 63.6 kg

DRUGS (4)
  1. TOPOTECAN [Suspect]
     Indication: SMALL CELL LUNG CANCER STAGE UNSPECIFIED
     Dosage: 4MGM2 CYCLIC
     Route: 042
     Dates: start: 20070702
  2. CARBOPLATIN [Suspect]
     Indication: SMALL CELL LUNG CANCER STAGE UNSPECIFIED
     Route: 042
     Dates: start: 20070702
  3. CARBOPLATIN [Suspect]
  4. NEULASTA [Concomitant]

REACTIONS (7)
  - ANAEMIA [None]
  - ARTHRALGIA [None]
  - DYSPNOEA [None]
  - FALL [None]
  - GASTROINTESTINAL HAEMORRHAGE [None]
  - HAEMATURIA [None]
  - MUSCULAR WEAKNESS [None]
